FAERS Safety Report 12563142 (Version 1)
Quarter: 2016Q3

REPORT INFORMATION
  Report Type: Spontaneous
  Country: US (occurrence: US)
  Receive Date: 20160715
  Receipt Date: 20160715
  Transmission Date: 20161109
  Serious: Yes (Other)
  Sender: FDA-Public Use
  Company Number: US-PURDUE-USA-2016-0131597

PATIENT
  Age: 80 Year
  Sex: Female

DRUGS (2)
  1. OXYCONTIN [Suspect]
     Active Substance: OXYCODONE HYDROCHLORIDE
     Indication: PAIN
     Dosage: 30 MG, Q12H
     Route: 048
     Dates: start: 2012
  2. OXYCONTIN [Suspect]
     Active Substance: OXYCODONE HYDROCHLORIDE
     Indication: BACK PAIN

REACTIONS (6)
  - Diarrhoea [Unknown]
  - Headache [Unknown]
  - Visual acuity reduced [Not Recovered/Not Resolved]
  - Unevaluable event [Unknown]
  - Cataract [Not Recovered/Not Resolved]
  - Drug withdrawal syndrome [Unknown]

NARRATIVE: CASE EVENT DATE: 201601
